FAERS Safety Report 23132277 (Version 1)
Quarter: 2023Q4

REPORT INFORMATION
  Report Type: Report from Study
  Country: BR (occurrence: BR)
  Receive Date: 20231101
  Receipt Date: 20231101
  Transmission Date: 20240110
  Serious: Yes (Life-Threatening, Hospitalization, Disabling)
  Sender: FDA-Public Use
  Company Number: BR-BRISTOL-MYERS SQUIBB COMPANY-2023-014479

PATIENT
  Age: 76 Year
  Sex: Male
  Weight: 96 kg

DRUGS (16)
  1. ENZALUTAMIDE [Suspect]
     Active Substance: ENZALUTAMIDE
     Indication: Prostate cancer
     Route: 048
     Dates: start: 20181114, end: 20181114
  2. ENZALUTAMIDE [Suspect]
     Active Substance: ENZALUTAMIDE
     Route: 048
     Dates: start: 20221231, end: 20230103
  3. PANTOPRAZOLE [Concomitant]
     Active Substance: PANTOPRAZOLE
     Indication: Product used for unknown indication
     Route: 048
     Dates: start: 20181229
  4. COLAGEN [Concomitant]
     Indication: Product used for unknown indication
     Route: 048
     Dates: start: 2008
  5. INSULIN LISPRO [Concomitant]
     Active Substance: INSULIN LISPRO
     Indication: Product used for unknown indication
     Route: 058
     Dates: start: 20190110
  6. INSULIN LISPRO [Concomitant]
     Active Substance: INSULIN LISPRO
     Route: 058
     Dates: start: 20211209
  7. DOMPERIDONE [Concomitant]
     Active Substance: DOMPERIDONE
     Indication: Adverse event
     Route: 048
     Dates: start: 20190828
  8. DIPYRONE [Concomitant]
     Active Substance: DIPYRONE
     Indication: Product used for unknown indication
     Route: 048
     Dates: start: 201906
  9. MUCOPOLYSACCHARIDE POLYSULFATE [Concomitant]
     Indication: Product used for unknown indication
     Dosage: 1 UNIT NOT PROVIDED
     Route: 061
     Dates: start: 20190111
  10. METFORMIN HYDROCHLORIDE [Concomitant]
     Active Substance: METFORMIN HYDROCHLORIDE
     Indication: Adverse event
     Route: 048
     Dates: start: 20200602
  11. INSULIN DEGLUDEC [Concomitant]
     Active Substance: INSULIN DEGLUDEC
     Indication: Adverse event
     Route: 058
     Dates: start: 20211209
  12. DIPYRONE [Concomitant]
     Active Substance: DIPYRONE
     Indication: Product used for unknown indication
     Route: 042
     Dates: start: 20230111, end: 20230119
  13. HEPARIN [Concomitant]
     Active Substance: HEPARIN SODIUM
     Indication: Product used for unknown indication
     Dosage: 5000 UNITS NOT SPECIFIED
     Route: 058
     Dates: start: 20230111, end: 20230119
  14. TRAMADOL [Concomitant]
     Active Substance: TRAMADOL\TRAMADOL HYDROCHLORIDE
     Indication: Product used for unknown indication
     Route: 042
     Dates: start: 20230111, end: 20230119
  15. INSULIN GLARGINE [Concomitant]
     Active Substance: INSULIN GLARGINE
     Indication: Product used for unknown indication
     Route: 058
     Dates: start: 20230111, end: 20230119
  16. DESVENLAFAXINE [Concomitant]
     Active Substance: DESVENLAFAXINE
     Indication: Product used for unknown indication
     Route: 048
     Dates: start: 20230111, end: 20230119

REACTIONS (1)
  - Hyperglycaemia [Recovered/Resolved]

NARRATIVE: CASE EVENT DATE: 20230126
